FAERS Safety Report 23039574 (Version 1)
Quarter: 2023Q4

REPORT INFORMATION
  Report Type: Spontaneous
  Country: FR (occurrence: FR)
  Receive Date: 20231006
  Receipt Date: 20231006
  Transmission Date: 20240109
  Serious: Yes (Other)
  Sender: FDA-Public Use
  Company Number: None

PATIENT
  Age: 80 Year
  Sex: Female
  Weight: 80.8 kg

DRUGS (20)
  1. CASPOFUNGIN ACETATE [Suspect]
     Active Substance: CASPOFUNGIN ACETATE
     Indication: Candida infection
     Dosage: CASPOFUNGIN (ACETATE) ((FUNGUS/GLAREA LOZOYENSIS))
     Dates: start: 20210205, end: 20210222
  2. RILMENIDINE [Suspect]
     Active Substance: RILMENIDINE
     Indication: Hypertension
     Dates: start: 20210223, end: 20210227
  3. RAMIPRIL [Suspect]
     Active Substance: RAMIPRIL
     Indication: Hypertension
     Dates: start: 20210222, end: 20210224
  4. PANTOPRAZOLE [Suspect]
     Active Substance: PANTOPRAZOLE
     Indication: Gastrooesophageal reflux prophylaxis
     Dates: start: 20210202, end: 20210301
  5. FUROSEMIDE [Suspect]
     Active Substance: FUROSEMIDE
     Indication: Hypertension
     Dates: start: 20210204, end: 20210206
  6. FUROSEMIDE [Suspect]
     Active Substance: FUROSEMIDE
     Dosage: UNIT DOSE :40 MG , FREQUENCY TIME : 1 DAY, DURATION : 10 DAYS
     Dates: start: 20210213, end: 20210223
  7. MEROPENEM [Suspect]
     Active Substance: MEROPENEM
     Indication: Lung disorder
     Dosage: 6 GRAM DAILY;  2 GX3/D
     Dates: start: 20210212, end: 20210222
  8. CIPROFLOXACIN [Suspect]
     Active Substance: CIPROFLOXACIN
     Indication: Lung disorder
     Dosage: 1200 MILLIGRAM DAILY; 400 MGX3/DAY
     Dates: start: 20210212, end: 20210222
  9. OXAZEPAM [Suspect]
     Active Substance: OXAZEPAM
     Indication: Anxiety
     Dosage: SERESTA 20 MG, TABLET,
     Dates: start: 20210209, end: 20210225
  10. ACETAMINOPHEN\GUAIFENESIN\OXOMEMAZINE\SODIUM BENZOATE [Suspect]
     Active Substance: ACETAMINOPHEN\GUAIFENESIN\OXOMEMAZINE\SODIUM BENZOATE
     Indication: Cough
     Dosage: 24 MILLIGRAM DAILY; 6 MGX4/D
     Dates: start: 20210203, end: 20210224
  11. METHYLPREDNISOLONE [Suspect]
     Active Substance: METHYLPREDNISOLONE
     Indication: Acute respiratory distress syndrome
     Dates: start: 20210215, end: 20210227
  12. VALACYCLOVIR [Suspect]
     Active Substance: VALACYCLOVIR HYDROCHLORIDE
     Indication: Antiviral prophylaxis
     Dosage: VALACICLOVIR ARROW 500 MG, FILM-COATED TABLET
     Dates: start: 20210202, end: 20210301
  13. HYDROXYZINE HYDROCHLORIDE [Suspect]
     Active Substance: HYDROXYZINE HYDROCHLORIDE
     Indication: Anxiety
     Dates: start: 20210215
  14. LOVENOX [Concomitant]
     Active Substance: ENOXAPARIN SODIUM
     Indication: Product used for unknown indication
  15. AMLODIPINE [Concomitant]
     Active Substance: AMLODIPINE BESYLATE
     Indication: Product used for unknown indication
  16. TOCILIZUMAB [Concomitant]
     Active Substance: TOCILIZUMAB
     Indication: Product used for unknown indication
  17. ZOPICLONE [Concomitant]
     Active Substance: ZOPICLONE
     Indication: Product used for unknown indication
  18. NITROGLYCERIN [Concomitant]
     Active Substance: NITROGLYCERIN
     Indication: Product used for unknown indication
  19. HALDOL [Concomitant]
     Active Substance: HALOPERIDOL
     Indication: Product used for unknown indication
  20. NICARDIPIN HYDROCHLORIDE [Concomitant]
     Indication: Hypertension
     Dates: start: 20210219, end: 20210224

REACTIONS (2)
  - Eosinophilia [Recovering/Resolving]
  - Rash maculo-papular [Recovered/Resolved]

NARRATIVE: CASE EVENT DATE: 20210225
